FAERS Safety Report 4627766-X (Version None)
Quarter: 2005Q2

REPORT INFORMATION
  Report Type: 
  Country: None (occurrence: None)
  Receive Date: 20050401
  Receipt Date: 20050318
  Transmission Date: 20051028
  Serious: Yes (Hospitalization)
  Sender: FDA-Public Use
  Company Number: 200510718GDS

PATIENT
  Age: 91 Year
  Sex: Female

DRUGS (4)
  1. ASPIRIN [Suspect]
     Dosage: 100 MG, QD, ORAL
     Route: 048
  2. IBUPROFEN [Suspect]
     Indication: POLYARTHRITIS
     Dosage: 400 MG, QD, ORAL
     Route: 048
     Dates: end: 20050225
  3. VALSARTAN/HCTZ [Concomitant]
  4. PARACETAMOL [Concomitant]

REACTIONS (4)
  - ANAEMIA [None]
  - HELICOBACTER INFECTION [None]
  - MELAENA [None]
  - PEPTIC ULCER [None]
